FAERS Safety Report 7994778-8 (Version None)
Quarter: 2011Q4

REPORT INFORMATION
  Report Type: 
  Country: None (occurrence: None)
  Receive Date: 20111220
  Receipt Date: 20111208
  Transmission Date: 20120403
  Serious: Yes (Other)
  Sender: FDA-Public Use
  Company Number: GB-ROCHE-1006426

PATIENT
  Sex: Female

DRUGS (12)
  1. TIOTROPIUM [Concomitant]
  2. CALCIUM/VITAMIN D [Concomitant]
  3. LUCENTIS [Suspect]
     Indication: AGE-RELATED MACULAR DEGENERATION
     Route: 050
     Dates: start: 20110714
  4. AMIODARONE HCL [Concomitant]
     Dates: start: 20080101
  5. DOXAZOSIN MESYLATE [Concomitant]
  6. LACTULOSE [Concomitant]
  7. ALENDRONIC ACID [Concomitant]
  8. FLUTICASONE PROPIONATE/SALMETEROL [Concomitant]
  9. VENTOLIN [Concomitant]
  10. ASPIRIN [Concomitant]
  11. ACETAMINOPHEN [Concomitant]
  12. ATORVASTATIN [Concomitant]

REACTIONS (2)
  - BLOOD PRESSURE DECREASED [None]
  - SYNCOPE [None]
